FAERS Safety Report 12681965 (Version 1)
Quarter: 2016Q3

REPORT INFORMATION
  Report Type: Spontaneous
  Country: FR (occurrence: FR)
  Receive Date: 20160824
  Receipt Date: 20160824
  Transmission Date: 20161109
  Serious: Yes (Death, Life-Threatening)
  Sender: FDA-Public Use
  Company Number: FR-BAYER-2016-162737

PATIENT
  Age: 52 Year
  Sex: Male

DRUGS (5)
  1. CLOPIDOGREL [Interacting]
     Active Substance: CLOPIDOGREL BISULFATE
     Indication: ANTIPLATELET THERAPY
     Dosage: 75 MG, UNK
  2. ABCIXIMAB [Interacting]
     Active Substance: ABCIXIMAB
     Indication: ANTIPLATELET THERAPY
     Dosage: 5.65 ML, UNK
  3. CLOPIDOGREL [Interacting]
     Active Substance: CLOPIDOGREL BISULFATE
     Indication: ANTIPLATELET THERAPY
     Dosage: 300 MG, UNK
  4. ACETYLSALICYLIC ACID({=100 MG) [Suspect]
     Active Substance: ASPIRIN
     Indication: ANTIPLATELET THERAPY
     Dosage: 250 MG, UNK
  5. ACETYLSALICYLIC ACID({=100 MG) [Interacting]
     Active Substance: ASPIRIN
     Indication: ANTIPLATELET THERAPY
     Dosage: 75 MG, QD

REACTIONS (4)
  - Subarachnoid haemorrhage [Fatal]
  - Drug administration error [Fatal]
  - Respiratory failure [None]
  - Labelled drug-drug interaction medication error [Fatal]
